FAERS Safety Report 7154289-9 (Version None)
Quarter: 2010Q4

REPORT INFORMATION
  Report Type: 
  Country: None (occurrence: None)
  Receive Date: 20101213
  Receipt Date: 20101130
  Transmission Date: 20110411
  Serious: Yes (Hospitalization)
  Sender: FDA-Public Use
  Company Number: NL-MEDIMMUNE-MEDI-0011911

PATIENT
  Sex: Female
  Weight: 5.05 kg

DRUGS (3)
  1. SYNAGIS [Suspect]
     Route: 030
     Dates: start: 20101004, end: 20101101
  2. SYNAGIS [Suspect]
     Route: 030
     Dates: start: 20101130, end: 20101130
  3. OXYGEN [Concomitant]

REACTIONS (5)
  - CYANOSIS [None]
  - OXYGEN SATURATION DECREASED [None]
  - PALLOR [None]
  - RESPIRATORY TRACT INFECTION VIRAL [None]
  - STRIDOR [None]
